FAERS Safety Report 6314553-X (Version None)
Quarter: 2009Q3

REPORT INFORMATION
  Report Type: 
  Country: None (occurrence: None)
  Receive Date: 20090819
  Receipt Date: 20090811
  Transmission Date: 20100115
  Serious: Yes (Other)
  Sender: FDA-Public Use
  Company Number: PHHY2009MX33987

PATIENT
  Sex: Female

DRUGS (4)
  1. GALVUS [Suspect]
     Indication: DIABETES MELLITUS
     Dosage: 1 TABLET (50 MG) PER DAY
     Route: 048
     Dates: start: 20090401
  2. DIOVAN HCT [Suspect]
     Indication: HYPERTENSION
     Dosage: UNK
     Dates: start: 20090711, end: 20090724
  3. PLENDIL [Concomitant]
  4. EPOGEN [Concomitant]

REACTIONS (3)
  - HYPERGLYCAEMIA [None]
  - RENAL FAILURE ACUTE [None]
  - VOMITING [None]
